FAERS Safety Report 8952725 (Version 1)
Quarter: 2012Q4

REPORT INFORMATION
  Report Type: 
  Country: CH (occurrence: CH)
  Receive Date: 20121205
  Receipt Date: 20121205
  Transmission Date: 20130627
  Serious: Yes (Other)
  Sender: FDA-Public Use
  Company Number: CH-JNJFOC-20121200058

PATIENT

DRUGS (2)
  1. DOXORUBICIN HYDROCHLORIDE (CAELYX) [Suspect]
     Indication: MYCOSIS FUNGOIDES
     Dosage: 1 hour infusion on days 1 and 15
     Route: 042
  2. ANTIEMETIC [Concomitant]
     Indication: PROPHYLAXIS
     Route: 065

REACTIONS (1)
  - Cardiac disorder [Unknown]
